FAERS Safety Report 18542552 (Version 1)
Quarter: 2020Q4

REPORT INFORMATION
  Report Type: Spontaneous
  Country: US (occurrence: US)
  Receive Date: 20201125
  Receipt Date: 20201125
  Transmission Date: 20210114
  Serious: Yes (Life-Threatening, Hospitalization, Disabling, Other)
  Sender: FDA-Public Use
  Company Number: US-009507513-2011USA012074

PATIENT
  Age: 72 Year
  Sex: Male
  Weight: 65 kg

DRUGS (18)
  1. GABAPENTIN. [Concomitant]
     Active Substance: GABAPENTIN
     Indication: PERIPHERAL VASCULAR DISORDER
     Dosage: 600MG THREE TIMES PER DAY
     Route: 048
     Dates: start: 200108
  2. DUONEB [Concomitant]
     Active Substance: ALBUTEROL SULFATE\IPRATROPIUM BROMIDE
     Indication: CHRONIC OBSTRUCTIVE PULMONARY DISEASE
     Dosage: 2PUFF FOUR TIMES PER DAY
     Route: 055
     Dates: start: 200804, end: 20110412
  3. FLUNISOLIDE. [Concomitant]
     Active Substance: FLUNISOLIDE
     Indication: CHRONIC OBSTRUCTIVE PULMONARY DISEASE
     Dosage: 4SPR TWICE PER DAY
     Route: 045
     Dates: start: 200411
  4. ASMANEX HFA [Concomitant]
     Active Substance: MOMETASONE FUROATE
     Dosage: 2PUFF AT NIGHT
     Route: 055
     Dates: start: 200802
  5. SIMVASTATIN TABLETS, USP [Concomitant]
     Active Substance: SIMVASTATIN
     Indication: HYPERLIPIDAEMIA
     Dosage: 10MG AT NIGHT
     Route: 048
     Dates: start: 199906
  6. ATENOLOL. [Concomitant]
     Active Substance: ATENOLOL
     Indication: HYPERTENSION
     Dosage: 25MG PER DAY
     Route: 048
     Dates: start: 200812
  7. NIFEDIPINE. [Concomitant]
     Active Substance: NIFEDIPINE
     Indication: HYPERTENSION
     Dosage: 60MG PER DAY
     Route: 048
     Dates: start: 200411
  8. SEREVENT DISKUS [Suspect]
     Active Substance: SALMETEROL XINAFOATE
     Indication: CHRONIC OBSTRUCTIVE PULMONARY DISEASE
     Dosage: 1PUFF TWICE PER DAY
     Route: 055
     Dates: start: 20110208, end: 20110318
  9. METFORMIN [Concomitant]
     Active Substance: METFORMIN HYDROCHLORIDE
     Indication: TYPE 2 DIABETES MELLITUS
     Dosage: 500MG TWICE PER DAY
     Route: 048
     Dates: start: 199803
  10. PRINIVIL [Suspect]
     Active Substance: LISINOPRIL
     Indication: HYPERTENSION
     Dosage: 20MG PER DAY
     Route: 048
     Dates: start: 199901, end: 20110318
  11. CAPSAICIN. [Concomitant]
     Active Substance: CAPSAICIN
     Indication: PERIPHERAL VASCULAR DISORDER
     Dosage: 3 (UNITS NOT PROVIDED)
     Route: 061
     Dates: start: 201102, end: 20110318
  12. DICYCLOMINE HYDROCHLORIDE. [Concomitant]
     Active Substance: DICYCLOMINE HYDROCHLORIDE
     Indication: SINUSITIS
     Dosage: 4MG FOUR TIMES PER DAY
     Route: 048
     Dates: start: 200810
  13. OMEPRAZOLE. [Concomitant]
     Active Substance: OMEPRAZOLE
     Indication: SINUSITIS
     Dosage: 20MG TWICE PER DAY
     Route: 048
     Dates: start: 200503
  14. NAPROXEN. [Concomitant]
     Active Substance: NAPROXEN
     Indication: ARTHRALGIA
     Dosage: 375MG THREE TIMES PER DAY
     Route: 048
     Dates: start: 1995
  15. CILOSTAZOL. [Concomitant]
     Active Substance: CILOSTAZOL
     Indication: HYPERLIPIDAEMIA
     Dosage: 50MG TWICE PER DAY
     Route: 048
     Dates: start: 200905
  16. FERROUS SULFATE. [Concomitant]
     Active Substance: FERROUS SULFATE
     Indication: ANAEMIA
     Dosage: 325MG PER DAY
     Route: 048
     Dates: start: 200808
  17. VARDENAFIL [Concomitant]
     Active Substance: VARDENAFIL HYDROCHLORIDE
     Indication: ERECTILE DYSFUNCTION
     Dosage: 10MG AS REQUIRED
     Route: 048
     Dates: start: 200808
  18. ASPIRIN. [Concomitant]
     Active Substance: ASPIRIN
     Indication: PROPHYLAXIS
     Dosage: 81MG PER DAY
     Route: 048
     Dates: start: 199902

REACTIONS (8)
  - Laryngeal oedema [Unknown]
  - Pneumonia [Unknown]
  - Biopsy lung [Unknown]
  - Angioedema [Unknown]
  - Cough [Unknown]
  - Surgery [Unknown]
  - Chest X-ray abnormal [Unknown]
  - Interstitial lung disease [Unknown]

NARRATIVE: CASE EVENT DATE: 20110318
